FAERS Safety Report 23404936 (Version 4)
Quarter: 2024Q2

REPORT INFORMATION
  Report Type: Spontaneous
  Country: US (occurrence: US)
  Receive Date: 20240116
  Receipt Date: 20240422
  Transmission Date: 20240716
  Serious: Yes (Death, Hospitalization)
  Sender: FDA-Public Use
  Company Number: US-PFIZER INC-202400005873

PATIENT
  Age: 69 Year
  Sex: Female
  Weight: 86.168 kg

DRUGS (2)
  1. GENOTROPIN [Suspect]
     Active Substance: SOMATROPIN
     Indication: Growth hormone deficiency
     Dosage: UNK
  2. GENOTROPIN [Suspect]
     Active Substance: SOMATROPIN
     Indication: Fatigue

REACTIONS (7)
  - Diverticulitis [Fatal]
  - Pancytopenia [Fatal]
  - Abdominal abscess [Fatal]
  - Immune system disorder [Fatal]
  - Red blood cell count decreased [Fatal]
  - White blood cell count decreased [Fatal]
  - Bone marrow disorder [Fatal]
